FAERS Safety Report 7587187-7 (Version None)
Quarter: 2011Q3

REPORT INFORMATION
  Report Type: 
  Country: None (occurrence: None)
  Receive Date: 20110701
  Receipt Date: 20110628
  Transmission Date: 20111222
  Serious: Yes (Hospitalization)
  Sender: FDA-Public Use
  Company Number: JP-UCBSA-034483

PATIENT
  Sex: Female
  Weight: 9.58 kg

DRUGS (7)
  1. MYSTAN [Concomitant]
     Route: 048
     Dates: start: 20110409
  2. VALPROATE SODIUM [Suspect]
     Indication: MYOCLONIC EPILEPSY
     Route: 048
     Dates: start: 20100223
  3. MYSTAN [Concomitant]
     Indication: MYOCLONIC EPILEPSY
     Route: 048
     Dates: start: 20110228
  4. KEPPRA [Suspect]
     Indication: MYOCLONIC EPILEPSY
     Route: 048
     Dates: start: 20110427, end: 20110401
  5. KEPPRA [Suspect]
     Route: 048
     Dates: start: 20110429, end: 20110101
  6. VALPROATE SODIUM [Suspect]
     Route: 048
     Dates: start: 20110228, end: 20110601
  7. KEPPRA [Suspect]
     Route: 048
     Dates: start: 20110509

REACTIONS (3)
  - PLATELET COUNT DECREASED [None]
  - CONVULSION [None]
  - BRONCHITIS [None]
